FAERS Safety Report 11077685 (Version 1)
Quarter: 2015Q2

REPORT INFORMATION
  Report Type: Spontaneous
  Country: US (occurrence: US)
  Receive Date: 20150430
  Receipt Date: 20150430
  Transmission Date: 20150821
  Serious: Yes (Other)
  Sender: FDA-Public Use
  Company Number: US-009507513-1504USA021372

PATIENT

DRUGS (1)
  1. DULERA [Suspect]
     Active Substance: FORMOTEROL FUMARATE DIHYDRATE\MOMETASONE FUROATE

REACTIONS (15)
  - Headache [Unknown]
  - Asthenia [Unknown]
  - Lymphadenopathy [Unknown]
  - Tremor [Unknown]
  - Nervousness [Unknown]
  - Osteoporosis [Unknown]
  - Arthropathy [Unknown]
  - Osteoarthritis [Unknown]
  - Fracture [Unknown]
  - Joint swelling [Unknown]
  - Depression [Unknown]
  - Liposarcoma [Unknown]
  - Angioedema [Unknown]
  - Osteochondrosis [Unknown]
  - Bone swelling [Unknown]
